FAERS Safety Report 4563706-X (Version None)
Quarter: 2005Q1

REPORT INFORMATION
  Report Type: 
  Country: None (occurrence: None)
  Receive Date: 20050125
  Receipt Date: 20050110
  Transmission Date: 20050727
  Serious: No
  Sender: FDA-Public Use
  Company Number: 05H-008-0285996-00

PATIENT
  Sex: Female

DRUGS (2)
  1. THIOPENTAL SODIUM [Suspect]
     Indication: CAESAREAN SECTION
     Dosage: SEE IMAGE
  2. THIOPENTAL SODIUM [Suspect]
     Indication: INDUCTION OF ANAESTHESIA
     Dosage: SEE IMAGE

REACTIONS (3)
  - DRUG EXPOSURE DURING PREGNANCY [None]
  - STILLBIRTH [None]
  - THERAPEUTIC RESPONSE DELAYED [None]
